FAERS Safety Report 22235526 (Version 1)
Quarter: 2023Q2

REPORT INFORMATION
  Report Type: Spontaneous
  Country: US (occurrence: None)
  Receive Date: 20230420
  Receipt Date: 20230420
  Transmission Date: 20230722
  Serious: No
  Sender: FDA-Public Use
  Company Number: 2023A087977

PATIENT
  Sex: Female

DRUGS (3)
  1. ZOLMITRIPTAN [Suspect]
     Active Substance: ZOLMITRIPTAN
  2. ATENOLOL [Suspect]
     Active Substance: ATENOLOL
  3. NURTEC ODT [Suspect]
     Active Substance: RIMEGEPANT SULFATE

REACTIONS (14)
  - Hypersensitivity [Unknown]
  - Headache [Unknown]
  - Discomfort [Unknown]
  - Pain [Unknown]
  - Migraine [Unknown]
  - Photophobia [Unknown]
  - Nausea [Unknown]
  - Vomiting [Unknown]
  - Parosmia [Unknown]
  - Hyperacusis [Unknown]
  - Abdominal migraine [Unknown]
  - Aura [Unknown]
  - Fatigue [Unknown]
  - Drug ineffective [Unknown]
